FAERS Safety Report 10653996 (Version 1)
Quarter: 2014Q4

REPORT INFORMATION
  Report Type: Spontaneous
  Country: US (occurrence: None)
  Receive Date: 20141215
  Receipt Date: 20141215
  Transmission Date: 20150529
  Serious: No
  Sender: FDA-Public Use
  Company Number: None

PATIENT
  Age: 61 Year
  Sex: Female

DRUGS (1)
  1. SIMPONI [Suspect]
     Active Substance: GOLIMUMAB
     Indication: RHEUMATOID ARTHRITIS
     Dosage: 50 MG, QMN, SQ
     Route: 058
     Dates: start: 20120313

REACTIONS (2)
  - Heart rate decreased [None]
  - Cardiac disorder [None]

NARRATIVE: CASE EVENT DATE: 20141124
